FAERS Safety Report 4878232-8 (Version None)
Quarter: 2006Q1

REPORT INFORMATION
  Report Type: 
  Country: None (occurrence: None)
  Receive Date: 20060111
  Receipt Date: 20050124
  Transmission Date: 20060701
  Serious: Yes (Hospitalization)
  Sender: FDA-Public Use
  Company Number: FR-MERCK-0501FRA00071

PATIENT
  Age: 68 Year
  Sex: Female

DRUGS (5)
  1. FOSAMAX [Suspect]
     Indication: OSTEOPOROSIS
     Route: 048
     Dates: start: 20030616, end: 20040301
  2. FOSAMAX [Suspect]
     Route: 048
     Dates: start: 19990826, end: 20030616
  3. FOSAMAX [Suspect]
     Route: 048
     Dates: start: 20050101
  4. ANALGESIC OR ANESTHETIC (UNSPECIFIED) [Concomitant]
     Indication: PAIN
     Route: 048
     Dates: end: 20040101
  5. CALCIUM CARBONATE AND CHOLECALCIFEROL [Concomitant]
     Indication: OSTEOPOROSIS
     Route: 048
     Dates: start: 20020125

REACTIONS (1)
  - OESOPHAGEAL ADENOCARCINOMA [None]
